FAERS Safety Report 17139916 (Version 1)
Quarter: 2019Q4

REPORT INFORMATION
  Report Type: Report from Study
  Country: IT (occurrence: IT)
  Receive Date: 20191211
  Receipt Date: 20191211
  Transmission Date: 20200122
  Serious: Yes (Hospitalization)
  Sender: FDA-Public Use
  Company Number: IT-ACCORD-164203

PATIENT
  Age: 53 Year
  Sex: Male

DRUGS (9)
  1. RAMIPRIL ACTAVIS [Suspect]
     Active Substance: RAMIPRIL
     Indication: HYPERTENSION
  2. METFORMIN [Concomitant]
     Active Substance: METFORMIN HYDROCHLORIDE
     Indication: DIABETES MELLITUS
  3. QUETIAPINE. [Concomitant]
     Active Substance: QUETIAPINE
     Indication: DEPRESSION
  4. AMLODIPINE [Suspect]
     Active Substance: AMLODIPINE BESYLATE
     Indication: HYPERTENSION
  5. EZETIMIBE. [Concomitant]
     Active Substance: EZETIMIBE
     Indication: BLOOD CHOLESTEROL INCREASED
  6. VALPROIC ACID. [Suspect]
     Active Substance: VALPROIC ACID
     Indication: EPILEPSY
  7. GLICLAZIDE [Concomitant]
     Active Substance: GLICLAZIDE
     Indication: DIABETES MELLITUS
  8. CLOTIAPINE [Concomitant]
     Active Substance: CLOTHIAPINE
     Indication: ANXIETY
  9. DIAZEPAM. [Concomitant]
     Active Substance: DIAZEPAM
     Indication: ANXIETY
     Route: 048

REACTIONS (4)
  - Hypotension [Unknown]
  - Respiratory failure [Unknown]
  - Poisoning [Unknown]
  - Sopor [Unknown]

NARRATIVE: CASE EVENT DATE: 20191106
